FAERS Safety Report 25512581 (Version 1)
Quarter: 2025Q3

REPORT INFORMATION
  Report Type: Spontaneous
  Country: US (occurrence: US)
  Receive Date: 20250703
  Receipt Date: 20250703
  Transmission Date: 20251020
  Serious: No
  Sender: RADIUS PHARM
  Company Number: US-RADIUS HEALTH INC.-2024US005274

PATIENT
  Age: 62 Year
  Sex: Female
  Weight: 50.794 kg

DRUGS (3)
  1. TYMLOS [Suspect]
     Active Substance: ABALOPARATIDE
     Indication: Osteoporosis
     Route: 058
     Dates: start: 2023
  2. TYMLOS [Suspect]
     Active Substance: ABALOPARATIDE
     Route: 058
  3. CALCIUM [Concomitant]
     Active Substance: CALCIUM
     Indication: Supplementation therapy

REACTIONS (11)
  - Asthenia [Unknown]
  - Intentional product misuse [Unknown]
  - Bone pain [Unknown]
  - Malaise [Unknown]
  - Nocturia [Unknown]
  - Incorrect product administration duration [Unknown]
  - Intentional dose omission [Unknown]
  - Product administered at inappropriate site [Unknown]
  - Injection site pain [Unknown]
  - Injection site bruising [Unknown]
  - Heart rate increased [Unknown]
